FAERS Safety Report 7240432-X (Version None)
Quarter: 2011Q1

REPORT INFORMATION
  Report Type: 
  Country: None (occurrence: None)
  Receive Date: 20110124
  Receipt Date: 20101223
  Transmission Date: 20110831
  Serious: Yes (Other)
  Sender: FDA-Public Use
  Company Number: US-BAYER-200941474NA

PATIENT
  Sex: Female
  Weight: 77 kg

DRUGS (16)
  1. ALEVE [Concomitant]
     Route: 065
  2. ADVIL [Concomitant]
     Indication: HEADACHE
     Route: 048
     Dates: start: 20090101, end: 20090101
  3. DARVOCET-N 100 [Concomitant]
     Route: 065
     Dates: start: 20090101
  4. POTASSIUM CHLORIDE [Concomitant]
     Route: 042
     Dates: start: 20090101, end: 20090101
  5. MORPHINE SULFATE [Concomitant]
     Route: 042
     Dates: start: 20090101, end: 20090101
  6. MOTRIN [Concomitant]
     Indication: HEADACHE
     Route: 048
     Dates: start: 20090101, end: 20090101
  7. ACETAZOLAMIDE [Concomitant]
     Route: 048
     Dates: start: 20090101, end: 20090101
  8. ZOFRAN [Concomitant]
     Route: 065
     Dates: start: 20090101, end: 20090101
  9. MIRALAX [Concomitant]
     Route: 065
     Dates: start: 20090101, end: 20090101
  10. REGLAN [Concomitant]
     Route: 042
     Dates: start: 20090101, end: 20090101
  11. COLACE [Concomitant]
     Route: 048
     Dates: start: 20090101, end: 20090101
  12. ACETAMINOPHEN AND OXYCODONE HCL [Concomitant]
     Route: 048
     Dates: start: 20090101, end: 20090101
  13. YAZ [Suspect]
     Indication: PREMENSTRUAL SYNDROME
     Route: 048
     Dates: start: 20060901, end: 20090101
  14. YAZ [Suspect]
     Indication: CONTRACEPTION
  15. NAPROXEN [Concomitant]
     Route: 065
  16. DIAMOX [Concomitant]
     Route: 065
     Dates: start: 20090101

REACTIONS (6)
  - INTRACRANIAL VENOUS SINUS THROMBOSIS [None]
  - HEADACHE [None]
  - INSOMNIA [None]
  - NAUSEA [None]
  - DIZZINESS [None]
  - VITH NERVE PARALYSIS [None]
